FAERS Safety Report 6046932-2 (Version None)
Quarter: 2009Q1

REPORT INFORMATION
  Report Type: 
  Country: None (occurrence: None)
  Receive Date: 20090122
  Receipt Date: 20090112
  Transmission Date: 20090719
  Serious: Yes (Hospitalization, Other)
  Sender: FDA-Public Use
  Company Number: TW-PFIZER INC-2009154011

PATIENT
  Age: 38 Year
  Sex: Female

DRUGS (5)
  1. LOPID [Suspect]
  2. GLUCOBAY [Suspect]
  3. CAFFEINE [Suspect]
  4. PHENYLPROPANOLAMINE [Suspect]
  5. FLURBIPROFEN [Suspect]

REACTIONS (1)
  - ACUTE GENERALISED EXANTHEMATOUS PUSTULOSIS [None]
